FAERS Safety Report 8081795-5 (Version None)
Quarter: 2012Q1

REPORT INFORMATION
  Report Type: 
  Country: None (occurrence: None)
  Receive Date: 20120130
  Receipt Date: 20120124
  Transmission Date: 20120608
  Serious: Yes (Death, Hospitalization, Other)
  Sender: FDA-Public Use
  Company Number: US-BRISTOL-MYERS SQUIBB COMPANY-16273401

PATIENT
  Age: 63 Year
  Sex: Female
  Weight: 54 kg

DRUGS (12)
  1. LORTAB [Concomitant]
     Dates: end: 20110105
  2. PROBIOTICA [Concomitant]
     Route: 048
     Dates: start: 20101026, end: 20111229
  3. SPIRIVA [Concomitant]
     Dates: start: 20060101, end: 20120105
  4. PREDNISONE TAB [Suspect]
     Indication: RENAL TRANSPLANT
     Route: 048
     Dates: start: 20070226
  5. CIPROFLOXACIN [Concomitant]
     Dates: end: 20111229
  6. MYCOPHENOLATE MOFETIL (CELLCEPT) [Suspect]
     Indication: RENAL TRANSPLANT
     Route: 048
     Dates: start: 20070225, end: 20111221
  7. FLOVENT [Concomitant]
     Dates: start: 20060426, end: 20110105
  8. SIMVASTATIN [Concomitant]
     Dates: start: 20070101, end: 20111229
  9. EXTRA STRENGTH TYLENOL [Concomitant]
     Dates: end: 20111229
  10. BELATACEPT [Suspect]
     Indication: RENAL TRANSPLANT
     Route: 042
     Dates: start: 20070224, end: 20111221
  11. LISINOPRIL [Concomitant]
     Dates: start: 20070302, end: 20111229
  12. CALCIUM + VITAMIN D [Concomitant]
     Dates: start: 20070319, end: 20111229

REACTIONS (4)
  - PULMONARY OEDEMA [None]
  - MALIGNANT PLEURAL EFFUSION [None]
  - PLEURAL EFFUSION [None]
  - NON-SMALL CELL LUNG CANCER [None]
